FAERS Safety Report 8760126 (Version 1)
Quarter: 2012Q4

REPORT INFORMATION
  Report Type: Spontaneous
  Country: US (occurrence: None)
  Receive Date: 20120829
  Receipt Date: 20120829
  Transmission Date: 20130627
  Serious: No
  Sender: FDA-Public Use
  Company Number: None

PATIENT
  Age: 56 Year
  Sex: Male
  Weight: 86.18 kg

DRUGS (1)
  1. TOLNAFTATE ANTIFUNGAL [Suspect]
     Indication: ONYCHOMYCOSIS
     Route: 061
     Dates: start: 20120712, end: 20120719

REACTIONS (2)
  - Product label issue [None]
  - Feeling abnormal [None]
